FAERS Safety Report 5343626-3 (Version None)
Quarter: 2007Q2

REPORT INFORMATION
  Report Type: 
  Country: None (occurrence: None)
  Receive Date: 20070531
  Receipt Date: 20070515
  Transmission Date: 20071010
  Serious: Yes (Hospitalization, Other)
  Sender: FDA-Public Use
  Company Number: L03-UKI-00919-01

PATIENT
  Age: 30 Year
  Sex: Female

DRUGS (2)
  1. CIPRAMIL (CITALOPRAM HYDROBROMIDE) [Suspect]
     Indication: DEPRESSION
     Dosage: 20 MG QD PO
     Route: 048
     Dates: start: 20001201, end: 20010101
  2. CIPRAMIL (CITALOPRAM HYDROBROMIDE) [Suspect]
     Indication: DEPRESSION
     Dosage: 10 MG QD PO
     Route: 048
     Dates: start: 20001101, end: 20001201

REACTIONS (2)
  - CHOLESTASIS [None]
  - DRUG EXPOSURE DURING PREGNANCY [None]
